FAERS Safety Report 17419853 (Version 3)
Quarter: 2020Q2

REPORT INFORMATION
  Report Type: Spontaneous
  Country: US (occurrence: US)
  Receive Date: 20200214
  Receipt Date: 20200610
  Transmission Date: 20200713
  Serious: No
  Sender: FDA-Public Use
  Company Number: US-TEVA-2020-US-1170270

PATIENT
  Sex: Male

DRUGS (14)
  1. SYNRIBO [Suspect]
     Active Substance: OMACETAXINE MEPESUCCINATE
     Dosage: 2.8 MG/ 0.8 ML BID X 7 DAYS OF 28 DAY CYCLE
     Dates: start: 20191217
  2. TYLENOL [Concomitant]
     Active Substance: ACETAMINOPHEN
  3. METFORMIN HCL [Concomitant]
     Active Substance: METFORMIN HYDROCHLORIDE
  4. SYNRIBO [Suspect]
     Active Substance: OMACETAXINE MEPESUCCINATE
     Dosage: 2.8 MG/0.80ML TWICE DAILY FOR 7 DAYS OF A 28 DAY CYCLE
     Route: 065
     Dates: start: 20180622
  5. ASPIRIN. [Concomitant]
     Active Substance: ASPIRIN
     Route: 065
  6. THC FREE [Concomitant]
  7. ALLEGRA [Concomitant]
     Active Substance: FEXOFENADINE HYDROCHLORIDE
  8. SYNRIBO [Suspect]
     Active Substance: OMACETAXINE MEPESUCCINATE
     Indication: CHRONIC MYELOID LEUKAEMIA
     Dosage: 2.8 MG/ 0.8 ML BID X 7 DAYS OF 28 DAY CYCLE
     Dates: start: 20180625
  9. ICLUSIG [Concomitant]
     Active Substance: PONATINIB
  10. ALLOPURINOL. [Concomitant]
     Active Substance: ALLOPURINOL
  11. IMATINIB. [Suspect]
     Active Substance: IMATINIB MESYLATE
     Route: 065
  12. LIPITOR [Concomitant]
     Active Substance: ATORVASTATIN CALCIUM
  13. ZOFRAN [Concomitant]
     Active Substance: ONDANSETRON HYDROCHLORIDE
  14. BIOTIN [Concomitant]
     Active Substance: BIOTIN

REACTIONS (7)
  - Splenomegaly [Unknown]
  - Musculoskeletal pain [Unknown]
  - Asthenia [Unknown]
  - Poor quality sleep [Unknown]
  - Nausea [Unknown]
  - Pain [Unknown]
  - Migraine [Unknown]
